FAERS Safety Report 17348757 (Version 1)
Quarter: 2020Q1

REPORT INFORMATION
  Report Type: Spontaneous
  Country: US (occurrence: US)
  Receive Date: 20200129
  Receipt Date: 20200129
  Transmission Date: 20200409
  Serious: Yes (Hospitalization)
  Sender: FDA-Public Use
  Company Number: None

PATIENT
  Age: 56 Year
  Sex: Female

DRUGS (3)
  1. RASUVO [Suspect]
     Active Substance: METHOTREXATE SODIUM
     Dosage: ?          OTHER FREQUENCY:ONCE WEEKLY;?
     Route: 058
  2. RASUVO [Concomitant]
     Active Substance: METHOTREXATE SODIUM
     Dates: start: 20191115
  3. NO DRUG NAME [Concomitant]
     Dates: end: 20200120

REACTIONS (3)
  - Febrile neutropenia [None]
  - Thrombocytopenia [None]
  - Anaemia [None]

NARRATIVE: CASE EVENT DATE: 20200118
